FAERS Safety Report 18962959 (Version 3)
Quarter: 2021Q2

REPORT INFORMATION
  Report Type: Report from Study
  Country: US (occurrence: US)
  Receive Date: 20210303
  Receipt Date: 20210408
  Transmission Date: 20210717
  Serious: Yes (Other)
  Sender: FDA-Public Use
  Company Number: US-TAKEDA-2021TUS013649

PATIENT
  Sex: Female
  Weight: 77 kg

DRUGS (16)
  1. MAGNESIUM [Concomitant]
     Active Substance: MAGNESIUM
  2. HUMAN NORMAL IMMUNOGLOBULIN; LIQUID [Suspect]
     Active Substance: HUMAN IMMUNOGLOBULIN G
     Indication: MYASTHENIA GRAVIS
     Dosage: 80 GRAM, Q4WEEKS
     Route: 042
     Dates: start: 20210218
  3. ACETAMINOPHEN. [Concomitant]
     Active Substance: ACETAMINOPHEN
  4. EPINEPHRINE. [Concomitant]
     Active Substance: EPINEPHRINE
  5. HEPARIN [Concomitant]
     Active Substance: HEPARIN SODIUM
  6. VITAMIN D3 [Concomitant]
     Active Substance: CHOLECALCIFEROL
  7. ALIGN [Concomitant]
     Active Substance: BIFIDOBACTERIUM LONGUM SUBSP. INFANTIS
  8. SODIUM CHLORIDE. [Concomitant]
     Active Substance: SODIUM CHLORIDE
  9. ESOMEPRAZOLE. [Concomitant]
     Active Substance: ESOMEPRAZOLE MAGNESIUM
  10. VITAMIN D2 + CALCIUM [CALCIUM;ERGOCALCIFEROL] [Concomitant]
  11. VYTORIN [Concomitant]
     Active Substance: EZETIMIBE\SIMVASTATIN
  12. LIDOCAINE. [Concomitant]
     Active Substance: LIDOCAINE
  13. PREDNISONE. [Concomitant]
     Active Substance: PREDNISONE
  14. DIPHENHYDRAMINE. [Concomitant]
     Active Substance: DIPHENHYDRAMINE
  15. SINGULAIR [Concomitant]
     Active Substance: MONTELUKAST SODIUM
  16. PROLIA [Concomitant]
     Active Substance: DENOSUMAB

REACTIONS (6)
  - Administration site bruise [Unknown]
  - Deafness [Unknown]
  - Back pain [Unknown]
  - Infusion related reaction [Unknown]
  - Administration site swelling [Unknown]
  - Off label use [Unknown]
